FAERS Safety Report 21335887 (Version 1)
Quarter: 2022Q3

REPORT INFORMATION
  Report Type: Report from Study
  Country: US (occurrence: US)
  Receive Date: 20220915
  Receipt Date: 20220915
  Transmission Date: 20221027
  Serious: Yes (Other)
  Sender: FDA-Public Use
  Company Number: US-BRISTOL-MYERS SQUIBB COMPANY-2022-103699

PATIENT
  Age: 54 Year
  Sex: Female
  Weight: 66.81 kg

DRUGS (1)
  1. REVLIMID [Suspect]
     Active Substance: LENALIDOMIDE
     Indication: Plasma cell myeloma
     Dosage: FOR 14 DAYS,7 DAY REPEAT
     Route: 048
     Dates: start: 20220705

REACTIONS (3)
  - Haemorrhage [Unknown]
  - Pain [Unknown]
  - Off label use [Unknown]
